FAERS Safety Report 12054087 (Version 1)
Quarter: 2016Q1

REPORT INFORMATION
  Report Type: Spontaneous
  Country: US (occurrence: US)
  Receive Date: 20160209
  Receipt Date: 20160209
  Transmission Date: 20160526
  Serious: No
  Sender: FDA-Public Use
  Company Number: US-SA-2016SA008279

PATIENT
  Age: 66 Year
  Sex: Male

DRUGS (2)
  1. ALIROCUMAB PREFILLED PEN [Concomitant]
     Active Substance: ALIROCUMAB
  2. PRALUENT [Suspect]
     Active Substance: ALIROCUMAB

REACTIONS (5)
  - Myalgia [Recovering/Resolving]
  - Ocular hyperaemia [Recovering/Resolving]
  - Nightmare [Recovering/Resolving]
  - Dry eye [Recovering/Resolving]
  - Unevaluable event [Recovering/Resolving]
